FAERS Safety Report 5953203-9 (Version None)
Quarter: 2008Q4

REPORT INFORMATION
  Report Type: 
  Country: None (occurrence: None)
  Receive Date: 20081031
  Receipt Date: 20080305
  Transmission Date: 20090506
  Serious: Yes (Other)
  Sender: FDA-Public Use
  Company Number: HQWYE398322JUL05

PATIENT
  Age: 59 Year
  Sex: Female
  Weight: 68.1 kg

DRUGS (2)
  1. PREMARIN [Suspect]
     Indication: VULVOVAGINAL DRYNESS
     Dosage: 3/4 APPLICATOR DAILY, VAGINAL
     Route: 067
     Dates: start: 20050714, end: 20050717
  2. LOVASTATIN [Concomitant]

REACTIONS (2)
  - APPLICATION SITE IRRITATION [None]
  - DYSURIA [None]
